FAERS Safety Report 5049493-X (Version None)
Quarter: 2006Q3

REPORT INFORMATION
  Report Type: 
  Country: None (occurrence: None)
  Receive Date: 20060712
  Receipt Date: 20060702
  Transmission Date: 20061208
  Serious: Yes (Other)
  Sender: FDA-Public Use
  Company Number: US-GLAXOSMITHKLINE-A0611576A

PATIENT
  Age: 48 Year
  Sex: Female

DRUGS (6)
  1. NICORETTE (MINT) [Suspect]
     Indication: SMOKING CESSATION THERAPY
     Dosage: 2MG SEE DOSAGE TEXT
     Route: 002
  2. NICORETTE (MINT) [Suspect]
     Indication: SMOKING CESSATION THERAPY
     Dosage: 2MG SEE DOSAGE TEXT
     Route: 002
  3. LIPITOR [Concomitant]
  4. MONOPRIL [Concomitant]
  5. LEXAPRO [Concomitant]
  6. CORTEF [Concomitant]

REACTIONS (2)
  - ANXIETY [None]
  - DEPENDENCE [None]
